FAERS Safety Report 9071476 (Version 1)
Quarter: 2013Q1

REPORT INFORMATION
  Report Type: Spontaneous
  Country: US (occurrence: US)
  Receive Date: 20130206
  Receipt Date: 20130206
  Transmission Date: 20140127
  Serious: No
  Sender: FDA-Public Use
  Company Number: US-ALLERGAN-1212052US

PATIENT
  Age: 89 Year
  Sex: Female

DRUGS (4)
  1. RESTASIS? [Suspect]
     Indication: DRY EYE
     Dosage: 2 GTT, BID
     Route: 047
     Dates: start: 201205
  2. BLINK [Concomitant]
     Indication: DRY EYE
  3. EYE DROPS [Concomitant]
     Indication: PRODUCT USED FOR UNKNOWN INDICATION
  4. BLOOD PRESSURE PILLS [Concomitant]
     Indication: PRODUCT USED FOR UNKNOWN INDICATION

REACTIONS (3)
  - Rhinorrhoea [Not Recovered/Not Resolved]
  - Drug ineffective [Unknown]
  - Lacrimation increased [Not Recovered/Not Resolved]
